FAERS Safety Report 10264822 (Version 1)
Quarter: 2014Q2

REPORT INFORMATION
  Report Type: Spontaneous
  Country: US (occurrence: US)
  Receive Date: 20140627
  Receipt Date: 20140627
  Transmission Date: 20141212
  Serious: No
  Sender: FDA-Public Use
  Company Number: US-JNJFOC-20140610873

PATIENT
  Sex: Female

DRUGS (1)
  1. INVEGA SUSTENNA [Suspect]
     Indication: PRODUCT USED FOR UNKNOWN INDICATION
     Dosage: CONSUMER BEGAN??PALIPERIDONE PALMITATE 234MG U/U/U, OVER THREE YEARS AGO.
     Route: 030

REACTIONS (5)
  - Feeling abnormal [Not Recovered/Not Resolved]
  - Skin ulcer [Not Recovered/Not Resolved]
  - Stomatitis [Not Recovered/Not Resolved]
  - Scar [Not Recovered/Not Resolved]
  - General physical health deterioration [Not Recovered/Not Resolved]
